FAERS Safety Report 12546783 (Version 3)
Quarter: 2016Q4

REPORT INFORMATION
  Report Type: Spontaneous
  Country: US (occurrence: US)
  Receive Date: 20160711
  Receipt Date: 20161007
  Transmission Date: 20170207
  Serious: Yes (Other)
  Sender: FDA-Public Use
  Company Number: US-PFIZER INC-2016337372

PATIENT
  Age: 44 Year
  Sex: Female

DRUGS (4)
  1. KLONOPIN [Concomitant]
     Active Substance: CLONAZEPAM
     Dosage: 1 MG ONE BY MOUTH IN MORNING AND A HALF AT LUNCH TIME AND AT NIGHT
     Route: 048
     Dates: start: 20160120
  2. ZIPRASIDONE HCL [Suspect]
     Active Substance: ZIPRASIDONE HYDROCHLORIDE
     Indication: BIPOLAR DISORDER
     Dosage: 60 MG, 1X/DAY
     Route: 048
     Dates: start: 20160413, end: 20160418
  3. LAMICTAL [Concomitant]
     Active Substance: LAMOTRIGINE
     Dosage: 150 MG, 2X/DAY
     Dates: start: 20160120
  4. NEURONTIN [Concomitant]
     Active Substance: GABAPENTIN
     Dosage: EVERY MORNING 600 MG EVERY NIGHT 400 MG ONE IN THE AFTERNOON
     Dates: start: 20160120

REACTIONS (8)
  - Nausea [Recovered/Resolved]
  - Eye disorder [Recovered/Resolved]
  - Skin lesion [Unknown]
  - Affective disorder [Unknown]
  - Dissociation [Recovering/Resolving]
  - Asthenia [Unknown]
  - Dizziness [Recovered/Resolved]
  - Muscular weakness [Unknown]

NARRATIVE: CASE EVENT DATE: 20160416
